FAERS Safety Report 4555794-1 (Version None)
Quarter: 2005Q1

REPORT INFORMATION
  Report Type: 
  Country: None (occurrence: None)
  Receive Date: 20050119
  Receipt Date: 20041119
  Transmission Date: 20050727
  Serious: Yes (Other)
  Sender: FDA-Public Use
  Company Number: PHEH2004US12558

PATIENT
  Age: 42 Year
  Sex: Female

DRUGS (3)
  1. METHYLDOPA [Suspect]
     Indication: HYPERTENSION
  2. DIOVAN HCT [Suspect]
     Indication: HYPERTENSION
     Dosage: 1 DF, QD
     Route: 048
     Dates: start: 20041207
  3. DIOVAN HCT [Suspect]
     Dosage: 1 DF, QD
     Route: 048
     Dates: start: 20010101, end: 20041117

REACTIONS (6)
  - ABORTION SPONTANEOUS [None]
  - DRUG EXPOSURE DURING PREGNANCY [None]
  - FEELING ABNORMAL [None]
  - MUSCLE TIGHTNESS [None]
  - SOMNOLENCE [None]
  - VISUAL DISTURBANCE [None]
